FAERS Safety Report 16673528 (Version 1)
Quarter: 2019Q3

REPORT INFORMATION
  Report Type: Spontaneous
  Country: US (occurrence: US)
  Receive Date: 20190806
  Receipt Date: 20190806
  Transmission Date: 20191004
  Serious: Yes (Hospitalization)
  Sender: FDA-Public Use
  Company Number: US-TARO PHARMACEUTICALS USA.,INC-2019SUN00361

PATIENT
  Age: 48 Year
  Sex: Male

DRUGS (1)
  1. AMIODARONE [Suspect]
     Active Substance: AMIODARONE
     Indication: ISCHAEMIC CARDIOMYOPATHY
     Dosage: HIGH DOSE, UNK
     Route: 065

REACTIONS (6)
  - Hypotension [Unknown]
  - Cardiac failure [Unknown]
  - Electrocardiogram QT prolonged [Unknown]
  - Atrial fibrillation [Unknown]
  - Haemodynamic instability [Unknown]
  - Multiple organ dysfunction syndrome [Unknown]
